FAERS Safety Report 4897765-1 (Version None)
Quarter: 2006Q1

REPORT INFORMATION
  Report Type: 
  Country: None (occurrence: None)
  Receive Date: 20060130
  Receipt Date: 20060130
  Transmission Date: 20060701
  Serious: Yes (Hospitalization)
  Sender: FDA-Public Use
  Company Number: None

PATIENT
  Sex: Female
  Weight: 77.5651 kg

DRUGS (2)
  1. PACLITAXEL [Suspect]
     Indication: OVARIAN CANCER
     Dosage: 315 MG IV DRIP
     Route: 041
     Dates: start: 20050927, end: 20060110
  2. CARBOPLATIN [Suspect]
     Indication: OVARIAN CANCER
     Dosage: 508 MG IV DRIP
     Route: 041
     Dates: start: 20050927, end: 20060110

REACTIONS (3)
  - CHEST PAIN [None]
  - DYSPNOEA [None]
  - MYOCARDIAL ISCHAEMIA [None]
